FAERS Safety Report 26073807 (Version 2)
Quarter: 2025Q4

REPORT INFORMATION
  Report Type: Report from Study
  Country: EU (occurrence: EU)
  Receive Date: 20251121
  Receipt Date: 20251205
  Transmission Date: 20260117
  Serious: Yes (Hospitalization)
  Sender: AZURITY PHARMACEUTICALS
  Company Number: EU-AZURITY PHARMACEUTICALS, INC.-AZR202511-003509

PATIENT
  Age: 78 Year
  Sex: Male

DRUGS (3)
  1. TRIPTORELIN [Suspect]
     Active Substance: TRIPTORELIN
     Indication: Prostate cancer
     Dosage: 22.5 MILLIGRAM(S) (1.00 X PER 6 MONTHS)
     Route: 030
     Dates: start: 20241118
  2. TRIPTORELIN [Suspect]
     Active Substance: TRIPTORELIN
     Dosage: 22.5 MILLIGRAM(S) (1.00 X PER 6 MONTHS)
     Route: 030
     Dates: start: 20250519
  3. TRIPTORELIN [Suspect]
     Active Substance: TRIPTORELIN
     Dosage: 22.5 MILLIGRAM(S) (1.00 X PER 6 MONTHS)
     Route: 030
     Dates: start: 20251110

REACTIONS (2)
  - Constipation [Unknown]
  - Gastrointestinal disorder [Unknown]

NARRATIVE: CASE EVENT DATE: 20251025
